FAERS Safety Report 8050695-9 (Version None)
Quarter: 2012Q1

REPORT INFORMATION
  Report Type: 
  Country: None (occurrence: None)
  Receive Date: 20120117
  Receipt Date: 20120117
  Transmission Date: 20120608
  Serious: Yes (Hospitalization)
  Sender: FDA-Public Use
  Company Number: None

PATIENT
  Age: 58 Year
  Sex: Female
  Weight: 49.441 kg

DRUGS (1)
  1. ENALAPRIL MALEATE [Suspect]
     Indication: RENAL HYPERTENSION
     Dosage: 1 TABLET
     Route: 048
     Dates: start: 19920301, end: 20120110

REACTIONS (4)
  - APHAGIA [None]
  - APHASIA [None]
  - RENAL FAILURE [None]
  - ANGIOEDEMA [None]
